FAERS Safety Report 10182327 (Version 1)
Quarter: 2014Q2

REPORT INFORMATION
  Report Type: Report from Study
  Country: US (occurrence: US)
  Receive Date: 20140520
  Receipt Date: 20140520
  Transmission Date: 20141212
  Serious: Yes (Other)
  Sender: FDA-Public Use
  Company Number: US-ROCHE-1404170

PATIENT
  Sex: Female
  Weight: 87.62 kg

DRUGS (4)
  1. AVASTIN [Suspect]
     Indication: SARCOMA
     Route: 065
     Dates: start: 201401, end: 201405
  2. LEVOTHYROXINE [Concomitant]
     Route: 048
  3. SERTRALINE [Concomitant]
     Indication: ANXIETY
     Route: 048
  4. PRAVASTATIN [Concomitant]
     Indication: BLOOD CHOLESTEROL
     Route: 048

REACTIONS (1)
  - Malignant neoplasm progression [Not Recovered/Not Resolved]
